FAERS Safety Report 5207947-7 (Version None)
Quarter: 2007Q1

REPORT INFORMATION
  Report Type: 
  Country: None (occurrence: None)
  Receive Date: 20070115
  Receipt Date: 20070103
  Transmission Date: 20070707
  Serious: Yes (Other)
  Sender: FDA-Public Use
  Company Number: US-ELI_LILLY_AND_COMPANY-US200609000350

PATIENT
  Age: 35 Year
  Sex: Female
  Weight: 86.167 kg

DRUGS (3)
  1. ZYPREXA [Suspect]
     Dosage: UNK, UNK
     Dates: start: 19960101
  2. CLOZAPINE [Concomitant]
     Dates: start: 19990101
  3. BUPROPION HCL [Concomitant]
     Dates: start: 19990101

REACTIONS (5)
  - BLOOD CHOLESTEROL ABNORMAL [None]
  - CEREBROVASCULAR DISORDER [None]
  - DIABETES MELLITUS [None]
  - HEPATITIS VIRAL [None]
  - POLYURIA [None]
